FAERS Safety Report 7285479-2 (Version None)
Quarter: 2011Q1

REPORT INFORMATION
  Report Type: 
  Country: None (occurrence: None)
  Receive Date: 20110210
  Receipt Date: 20110201
  Transmission Date: 20110831
  Serious: Yes (Hospitalization)
  Sender: FDA-Public Use
  Company Number: JP-ASTRAZENECA-2011SE03571

PATIENT
  Age: 62 Year
  Sex: Female

DRUGS (3)
  1. SYMBICORT [Suspect]
     Dosage: 6 DF
     Route: 055
  2. SYMBICORT [Suspect]
     Dosage: 8 DF
     Route: 055
     Dates: start: 20110111
  3. SYMBICORT [Suspect]
     Dosage: 3 DF
     Route: 055

REACTIONS (3)
  - EPILEPSY [None]
  - OVERDOSE [None]
  - BLOOD CORTISOL DECREASED [None]
